FAERS Safety Report 4431450-5 (Version None)
Quarter: 2004Q3

REPORT INFORMATION
  Report Type: 
  Country: None (occurrence: None)
  Receive Date: 20040820
  Receipt Date: 20040820
  Transmission Date: 20050211
  Serious: Yes (Death)
  Sender: FDA-Public Use
  Company Number: None

PATIENT
  Age: 78 Year
  Sex: Female

DRUGS (1)
  1. LEVAQUIN [Suspect]
     Indication: PNEUMONIA
     Dosage: 500 MG Q 12 HOURS INTRAVENOUS
     Route: 042
     Dates: start: 20040720, end: 20040720

REACTIONS (5)
  - ANOXIC ENCEPHALOPATHY [None]
  - BRAIN DEATH [None]
  - COMA [None]
  - TORSADE DE POINTES [None]
  - VENTRICULAR TACHYCARDIA [None]
